FAERS Safety Report 13541347 (Version 2)
Quarter: 2018Q3

REPORT INFORMATION
  Report Type: Spontaneous
  Country: US (occurrence: US)
  Receive Date: 20170512
  Receipt Date: 20180913
  Transmission Date: 20181010
  Serious: No
  Sender: FDA-Public Use
  Company Number: US-SA-2016SA097678

PATIENT
  Age: 69 Year
  Sex: Female

DRUGS (8)
  1. INSULIN [Concomitant]
     Active Substance: INSULIN NOS
     Dosage: 12 DF,UNK
     Route: 065
  2. APIDRA [Suspect]
     Active Substance: INSULIN GLULISINE
     Indication: TYPE 2 DIABETES MELLITUS
     Dosage: 20 DF,UNK
     Route: 065
     Dates: start: 2015
  3. APIDRA [Suspect]
     Active Substance: INSULIN GLULISINE
     Dosage: UNK UNK,UNK
     Route: 065
     Dates: end: 2016
  4. JANUVIA [Concomitant]
     Active Substance: SITAGLIPTIN PHOSPHATE
     Dosage: 1 DF,UNK
     Route: 065
  5. HUMALOG [Concomitant]
     Active Substance: INSULIN LISPRO
     Dosage: UNK UNK,UNK
     Route: 065
  6. NOVOLOG [Concomitant]
     Active Substance: INSULIN ASPART
     Dosage: UNK UNK,TID
     Route: 065
  7. INSULIN GLARGINE [Concomitant]
     Active Substance: INSULIN GLARGINE
     Dosage: 55 DF,HS
  8. METFORMIN [Concomitant]
     Active Substance: METFORMIN HYDROCHLORIDE
     Dosage: UNK

REACTIONS (9)
  - Erythema [Unknown]
  - Malaise [Recovered/Resolved]
  - Pain in extremity [Unknown]
  - Blood glucose decreased [Unknown]
  - Asthenia [Unknown]
  - Oedema peripheral [Unknown]
  - Blood glucose increased [Recovering/Resolving]
  - Rash [Recovered/Resolved]
  - Fatigue [Unknown]

NARRATIVE: CASE EVENT DATE: 2015
